FAERS Safety Report 12909178 (Version 1)
Quarter: 2016Q4

REPORT INFORMATION
  Report Type: Report from Study
  Country: US (occurrence: US)
  Receive Date: 20161103
  Receipt Date: 20161103
  Transmission Date: 20170207
  Serious: Yes (Death)
  Sender: FDA-Public Use
  Company Number: US-UCBSA-2016041529

PATIENT
  Sex: Male

DRUGS (2)
  1. LACOSAMIDE. [Suspect]
     Active Substance: LACOSAMIDE
     Indication: EPILEPSY
     Dosage: 50 MG, 2X/DAY (BID)
     Route: 048
     Dates: start: 20160722, end: 2016
  2. LACOSAMIDE. [Suspect]
     Active Substance: LACOSAMIDE
     Dosage: ONE MWF AFTER DIALYSIS
     Route: 048
     Dates: start: 2016

REACTIONS (1)
  - Death [Fatal]

NARRATIVE: CASE EVENT DATE: 2016
